FAERS Safety Report 10213035 (Version 2)
Quarter: 2014Q2

REPORT INFORMATION
  Report Type: Spontaneous
  Country: JP (occurrence: JP)
  Receive Date: 20140603
  Receipt Date: 20140603
  Transmission Date: 20141212
  Serious: Yes (Other)
  Sender: FDA-Public Use
  Company Number: JP-AMGEN-JPNSP2014024543

PATIENT
  Sex: Male

DRUGS (3)
  1. ENBREL [Suspect]
     Indication: PRODUCT USED FOR UNKNOWN INDICATION
     Dosage: 50 MG, QWK
     Route: 064
     Dates: start: 20070727
  2. PREDONINE                          /00016201/ [Suspect]
     Indication: PROPHYLAXIS
     Dosage: 5 MG, QD
     Route: 064
  3. PREDOHAN [Suspect]
     Indication: PRODUCT USED FOR UNKNOWN INDICATION
     Dosage: 1 TABLET, ONCE A DAY
     Route: 064
     Dates: start: 20130610

REACTIONS (4)
  - Maternal exposure during pregnancy [Unknown]
  - Premature baby [Recovered/Resolved]
  - Tachypnoea [Recovered/Resolved]
  - Low birth weight baby [Recovered/Resolved]
